FAERS Safety Report 9522609 (Version 2)
Quarter: 2014Q1

REPORT INFORMATION
  Report Type: Report from Study
  Country: CA (occurrence: CA)
  Receive Date: 20130913
  Receipt Date: 20140218
  Transmission Date: 20141002
  Serious: Yes (Hospitalization)
  Sender: FDA-Public Use
  Company Number: CA-JNJFOC-20130903985

PATIENT
  Sex: Female
  Weight: 79 kg

DRUGS (4)
  1. REMICADE [Suspect]
     Indication: CROHN^S DISEASE
     Route: 042
     Dates: start: 20131210
  2. REMICADE [Suspect]
     Indication: CROHN^S DISEASE
     Route: 042
     Dates: start: 20120107
  3. REMICADE [Suspect]
     Indication: CROHN^S DISEASE
     Route: 042
     Dates: start: 2009
  4. FLAGYL [Concomitant]
     Route: 065

REACTIONS (4)
  - Large intestine perforation [Not Recovered/Not Resolved]
  - Colonic abscess [Not Recovered/Not Resolved]
  - Colon neoplasm [Not Recovered/Not Resolved]
  - Impaired healing [Not Recovered/Not Resolved]
